FAERS Safety Report 25309113 (Version 2)
Quarter: 2025Q2

REPORT INFORMATION
  Report Type: Report from Study
  Country: US (occurrence: US)
  Receive Date: 20250513
  Receipt Date: 20250602
  Transmission Date: 20250717
  Serious: Yes (Other)
  Sender: MALLINCKRODT
  Company Number: US-MALLINCKRODT-MNK202500679

PATIENT
  Sex: Female

DRUGS (3)
  1. CORTICOTROPIN [Suspect]
     Active Substance: CORTICOTROPIN
     Indication: Multiple sclerosis
  2. CORTICOTROPIN [Suspect]
     Active Substance: CORTICOTROPIN
     Dates: start: 20250428
  3. KESIMPTA [Suspect]
     Active Substance: OFATUMUMAB
     Indication: Product used for unknown indication

REACTIONS (7)
  - Multiple sclerosis relapse [Not Recovered/Not Resolved]
  - Optic neuritis [Unknown]
  - Illness [Unknown]
  - Gait disturbance [Unknown]
  - Visual impairment [Unknown]
  - Swelling [Recovered/Resolved]
  - Malaise [Unknown]
